FAERS Safety Report 14347079 (Version 2)
Quarter: 2018Q2

REPORT INFORMATION
  Report Type: Spontaneous
  Country: US (occurrence: US)
  Receive Date: 20180103
  Receipt Date: 20180425
  Transmission Date: 20180711
  Serious: No
  Sender: FDA-Public Use
  Company Number: US-PFIZER INC-2017555340

PATIENT
  Age: 78 Year
  Sex: Female
  Weight: 92.99 kg

DRUGS (3)
  1. LYRICA [Suspect]
     Active Substance: PREGABALIN
     Indication: PAIN IN EXTREMITY
  2. LYRICA [Suspect]
     Active Substance: PREGABALIN
     Indication: PAIN
  3. LYRICA [Suspect]
     Active Substance: PREGABALIN
     Indication: HYPOAESTHESIA
     Dosage: 75MG CAPSULE TWICE A DAY
     Route: 048
     Dates: start: 20170410

REACTIONS (3)
  - Hypersomnia [Not Recovered/Not Resolved]
  - Photosensitivity reaction [Unknown]
  - Drug ineffective for unapproved indication [Unknown]
